FAERS Safety Report 9993664 (Version 1)
Quarter: 2014Q1

REPORT INFORMATION
  Report Type: Spontaneous
  Country: US (occurrence: US)
  Receive Date: 20140310
  Receipt Date: 20140310
  Transmission Date: 20141002
  Serious: Yes (Hospitalization)
  Sender: FDA-Public Use
  Company Number: US-FRI-1000060425

PATIENT
  Sex: Male

DRUGS (5)
  1. TUDORZA PRESSAIR [Suspect]
     Indication: CHRONIC OBSTRUCTIVE PULMONARY DISEASE
     Dosage: 400 MCG
     Route: 055
     Dates: start: 201401, end: 20140306
  2. LOSARTAN [Concomitant]
  3. TAMSULOSIN [Concomitant]
  4. ALBUTEROL [Concomitant]
  5. MVI [Concomitant]

REACTIONS (4)
  - Pneumonia [Recovered/Resolved]
  - Bronchitis [Recovered/Resolved]
  - Nasopharyngitis [Recovered/Resolved]
  - Dyspnoea [Not Recovered/Not Resolved]
